FAERS Safety Report 12610505 (Version 1)
Quarter: 2016Q3

REPORT INFORMATION
  Report Type: Spontaneous
  Country: US (occurrence: US)
  Receive Date: 20160801
  Receipt Date: 20160801
  Transmission Date: 20161109
  Serious: No
  Sender: FDA-Public Use
  Company Number: US-ELI_LILLY_AND_COMPANY-US201607010223

PATIENT
  Sex: Female

DRUGS (5)
  1. CYMBALTA [Suspect]
     Active Substance: DULOXETINE HYDROCHLORIDE
     Indication: NAUSEA
     Dosage: 20 MG, QD
     Route: 065
     Dates: end: 2014
  2. DULOXETINE HYDROCHLORIDE. [Suspect]
     Active Substance: DULOXETINE HYDROCHLORIDE
     Indication: NAUSEA
  3. CLONAZEPAM. [Concomitant]
     Active Substance: CLONAZEPAM
     Dosage: UNK, UNKNOWN
     Route: 065
  4. CYMBALTA [Suspect]
     Active Substance: DULOXETINE HYDROCHLORIDE
     Indication: ABDOMINAL PAIN
     Dosage: 20 MG, QD
     Route: 065
     Dates: start: 2014
  5. DULOXETINE HYDROCHLORIDE. [Suspect]
     Active Substance: DULOXETINE HYDROCHLORIDE
     Indication: ABDOMINAL PAIN
     Dosage: UNK, UNKNOWN
     Route: 065
     Dates: start: 2014, end: 2014

REACTIONS (13)
  - Counterfeit drug administered [Unknown]
  - Tremor [Recovered/Resolved]
  - Constipation [Recovered/Resolved]
  - Feeling hot [Recovered/Resolved]
  - Disturbance in attention [Recovered/Resolved]
  - Depressed mood [Recovered/Resolved]
  - Abdominal pain [Recovered/Resolved]
  - Flatulence [Recovered/Resolved]
  - Off label use [Recovered/Resolved]
  - Chills [Recovered/Resolved]
  - Abdominal distension [Recovered/Resolved]
  - Decreased appetite [Recovered/Resolved]
  - Fatigue [Recovered/Resolved]
